FAERS Safety Report 8574409-9 (Version None)
Quarter: 2012Q3

REPORT INFORMATION
  Report Type: 
  Country: None (occurrence: None)
  Receive Date: 20120806
  Receipt Date: 20120731
  Transmission Date: 20120928
  Serious: Yes (Hospitalization)
  Sender: FDA-Public Use
  Company Number: US-PFIZER INC-2012186083

PATIENT
  Age: 80 Year
  Sex: Female
  Weight: 53.515 kg

DRUGS (13)
  1. DILTIAZEM [Concomitant]
     Indication: HYPERTENSION
     Dosage: 240 MG, 2X/DAY
  2. LATANOPROST [Suspect]
     Indication: GLAUCOMA
     Dosage: ONE DROP IN EACH EYE ONCE A DAY
     Route: 047
     Dates: start: 20120101
  3. LATANOPROST [Suspect]
     Indication: MACULAR DEGENERATION
  4. BUTALBITAL AND ACETAMINOPHEN [Concomitant]
     Indication: PAIN
     Dosage: UNK, 1X/DAY
  5. NEXIUM [Concomitant]
     Indication: GASTROOESOPHAGEAL REFLUX DISEASE
     Dosage: 40 MG, UNK
  6. LATANOPROST [Suspect]
     Indication: GLAUCOMA
     Dosage: ONE DROP IN EACH EYE ONCE A DAY
     Route: 047
     Dates: end: 20120101
  7. DIAZEPAM [Concomitant]
     Indication: NEURALGIA
     Dosage: 5 MG, UNK
  8. SIMVASTATIN [Concomitant]
     Indication: BLOOD CHOLESTEROL INCREASED
     Dosage: UNK
  9. PLAVIX [Concomitant]
     Dosage: 75 MG, UNK
  10. LOMOTIL [Concomitant]
     Indication: COLITIS
     Dosage: UNK, AS NEEDED
  11. AZOPT [Concomitant]
     Indication: GLAUCOMA
     Dosage: UNK
  12. LATANOPROST [Suspect]
     Indication: MACULAR DEGENERATION
  13. LEVOTHYROXINE [Concomitant]
     Indication: HYPOTHYROIDISM
     Dosage: 75MCG AND 50MCG ON ALTERNATE DAYS

REACTIONS (8)
  - DIZZINESS [None]
  - PRODUCT DROPPER ISSUE [None]
  - DIARRHOEA [None]
  - EXPIRED DRUG ADMINISTERED [None]
  - ASTHENIA [None]
  - NAUSEA [None]
  - PNEUMONIA [None]
  - INCORRECT DOSE ADMINISTERED [None]
